FAERS Safety Report 7267384-0 (Version None)
Quarter: 2011Q1

REPORT INFORMATION
  Report Type: 
  Country: None (occurrence: None)
  Receive Date: 20110201
  Receipt Date: 20101005
  Transmission Date: 20110831
  Serious: No
  Sender: FDA-Public Use
  Company Number: A0877683A

PATIENT
  Age: 75 Year
  Sex: Male

DRUGS (6)
  1. ARIXTRA [Suspect]
     Indication: DEEP VEIN THROMBOSIS
     Dosage: 10MG PER DAY
     Route: 058
     Dates: start: 20100701
  2. METOPROLOL [Concomitant]
  3. ZOCOR [Concomitant]
  4. INSULIN [Concomitant]
  5. ZETIA [Concomitant]
  6. UNSPECIFIED MEDICATIONS [Concomitant]

REACTIONS (5)
  - OEDEMA PERIPHERAL [None]
  - LOCAL SWELLING [None]
  - INJECTION SITE VESICLES [None]
  - RASH PAPULAR [None]
  - PETECHIAE [None]
